FAERS Safety Report 9459227 (Version 1)
Quarter: 2013Q3

REPORT INFORMATION
  Report Type: Spontaneous
  Country: GB (occurrence: GB)
  Receive Date: 20130814
  Receipt Date: 20130814
  Transmission Date: 20140515
  Serious: Yes (Disabling)
  Sender: FDA-Public Use
  Company Number: GB-B.I. PHARMACEUTICALS,INC./RIDGEFIELD-2013-BI-24779YA

PATIENT
  Age: 79 Year
  Sex: Male

DRUGS (6)
  1. TAMSULOSINA [Suspect]
     Indication: URINARY TRACT OBSTRUCTION
     Dosage: 400 UG, UID/QD
     Route: 048
     Dates: start: 20130706, end: 20130726
  2. BISACODYL [Concomitant]
  3. BISOPROLOL [Concomitant]
  4. OMEPRAZOLE [Concomitant]
     Dosage: 20 MG
  5. PARACETAMOL [Concomitant]
     Dosage: 1 G
  6. SIMVASTATIN [Concomitant]
     Dosage: 20 MG

REACTIONS (6)
  - Groin pain [Not Recovered/Not Resolved]
  - Local swelling [Not Recovered/Not Resolved]
  - Joint swelling [Not Recovered/Not Resolved]
  - Arthralgia [Not Recovered/Not Resolved]
  - Testicular pain [Not Recovered/Not Resolved]
  - Testicular swelling [Not Recovered/Not Resolved]
